FAERS Safety Report 17649469 (Version 1)
Quarter: 2020Q2

REPORT INFORMATION
  Report Type: Spontaneous
  Country: GB (occurrence: GB)
  Receive Date: 20200409
  Receipt Date: 20200409
  Transmission Date: 20200713
  Serious: Yes (Life-Threatening)
  Sender: FDA-Public Use
  Company Number: GB-ASTRAZENECA-2020SE47963

PATIENT
  Age: 66 Year
  Sex: Male
  Weight: 71.7 kg

DRUGS (2)
  1. AMITRIPTYLINE [Concomitant]
     Active Substance: AMITRIPTYLINE
  2. DURVALUMAB. [Suspect]
     Active Substance: DURVALUMAB
     Indication: CLINICAL TRIAL PARTICIPANT
     Dosage: 1500.0MG UNKNOWN
     Route: 042
     Dates: start: 20200313, end: 20200313

REACTIONS (1)
  - Thrombocytopenia [Not Recovered/Not Resolved]

NARRATIVE: CASE EVENT DATE: 20200323
